FAERS Safety Report 11113081 (Version 2)
Quarter: 2015Q2

REPORT INFORMATION
  Report Type: Spontaneous
  Country: HR (occurrence: HR)
  Receive Date: 20150514
  Receipt Date: 20150520
  Transmission Date: 20150821
  Serious: Yes (Hospitalization, Other)
  Sender: FDA-Public Use
  Company Number: HR-PFIZER INC-2015160909

PATIENT
  Age: 24 Year
  Sex: Female

DRUGS (7)
  1. ALPRAZOLAM. [Suspect]
     Active Substance: ALPRAZOLAM
     Indication: ANXIETY DISORDER
     Dosage: 0.25 MG, AS NEEDED
  2. ALPRAZOLAM. [Suspect]
     Active Substance: ALPRAZOLAM
     Dosage: 0.5 MG, 3X/DAY
  3. MIRTAZAPINE. [Suspect]
     Active Substance: MIRTAZAPINE
     Indication: ANXIETY DISORDER
     Dosage: 15 MG, 2X/DAY
  4. SULPIRID [Suspect]
     Active Substance: SULPIRIDE
     Indication: ANXIETY DISORDER
     Dosage: 50 MG, 2X/DAY
  5. ALPRAZOLAM. [Suspect]
     Active Substance: ALPRAZOLAM
     Dosage: 0.5 MG, 2X/DAY
  6. SULPIRID [Suspect]
     Active Substance: SULPIRIDE
     Dosage: 50 MG, 4X/DAY
  7. SERTRALINE HCL [Suspect]
     Active Substance: SERTRALINE HYDROCHLORIDE
     Indication: ANXIETY DISORDER
     Dosage: 50 MG, 1X/DAY

REACTIONS (5)
  - Drug ineffective [Recovered/Resolved]
  - Mental impairment [Recovered/Resolved]
  - Suicidal ideation [Recovered/Resolved]
  - Anxiety [Recovered/Resolved]
  - Disease progression [Recovered/Resolved]
